FAERS Safety Report 22000479 (Version 2)
Quarter: 2023Q1

REPORT INFORMATION
  Report Type: Report from Study
  Country: US (occurrence: US)
  Receive Date: 20230216
  Receipt Date: 20230220
  Transmission Date: 20230418
  Serious: No
  Sender: FDA-Public Use
  Company Number: US-002147023-NVSC2023US033381

PATIENT
  Age: 72 Year
  Sex: Female

DRUGS (2)
  1. KISQALI FEMARA CO-PACK [Suspect]
     Active Substance: LETROZOLE\RIBOCICLIB
     Indication: Breast cancer
     Dosage: 600 MG, QD
     Route: 048
     Dates: start: 20230127
  2. KISQALI FEMARA CO-PACK [Suspect]
     Active Substance: LETROZOLE\RIBOCICLIB
     Indication: Breast cancer
     Dosage: UNK
     Route: 065

REACTIONS (6)
  - Hypersensitivity [Recovering/Resolving]
  - Fatigue [Unknown]
  - Diarrhoea [Unknown]
  - Pyrexia [Recovering/Resolving]
  - Rash [Recovering/Resolving]
  - Decreased appetite [Recovering/Resolving]

NARRATIVE: CASE EVENT DATE: 20230207
